FAERS Safety Report 13464351 (Version 1)
Quarter: 2017Q2

REPORT INFORMATION
  Report Type: Spontaneous
  Country: US (occurrence: US)
  Receive Date: 20170420
  Receipt Date: 20170420
  Transmission Date: 20170830
  Serious: Yes (Other)
  Sender: FDA-Public Use
  Company Number: US-ROCHE-722560

PATIENT
  Age: 15 Year
  Sex: Male
  Weight: 71.7 kg

DRUGS (6)
  1. PROZAC [Concomitant]
     Active Substance: FLUOXETINE HYDROCHLORIDE
     Indication: ANXIETY
     Route: 065
  2. SOTRET [Suspect]
     Active Substance: ISOTRETINOIN
     Indication: ACNE CYSTIC
     Route: 065
  3. CONCERTA [Concomitant]
     Active Substance: METHYLPHENIDATE HYDROCHLORIDE
     Indication: ATTENTION DEFICIT/HYPERACTIVITY DISORDER
     Route: 065
  4. ACCUTANE [Suspect]
     Active Substance: ISOTRETINOIN
     Route: 065
  5. ACCUTANE [Suspect]
     Active Substance: ISOTRETINOIN
     Route: 065
     Dates: start: 20061120, end: 20061213
  6. ACCUTANE [Suspect]
     Active Substance: ISOTRETINOIN
     Indication: ACNE CYSTIC
     Route: 065

REACTIONS (8)
  - Blood triglycerides increased [Recovered/Resolved]
  - Lip dry [Unknown]
  - Blood cholesterol increased [Not Recovered/Not Resolved]
  - Folliculitis [Unknown]
  - Herpes simplex [Unknown]
  - Eczema [Unknown]
  - Colitis ulcerative [Unknown]
  - Keratosis pilaris [Unknown]

NARRATIVE: CASE EVENT DATE: 20060612
